FAERS Safety Report 4755089-7 (Version None)
Quarter: 2005Q3

REPORT INFORMATION
  Report Type: 
  Country: None (occurrence: None)
  Receive Date: 20050829
  Receipt Date: 20050823
  Transmission Date: 20060218
  Serious: Yes (Hospitalization, Other)
  Sender: FDA-Public Use
  Company Number: PHEH2005US09426

PATIENT
  Age: 82 Year
  Sex: Female

DRUGS (1)
  1. CLOZARIL [Suspect]
     Dosage: 25 MG, BID
     Route: 048

REACTIONS (3)
  - LEUKOPENIA [None]
  - MENTAL STATUS CHANGES [None]
  - OVARIAN CANCER [None]
